FAERS Safety Report 9275180 (Version 7)
Quarter: 2013Q3

REPORT INFORMATION
  Report Type: Report from Study
  Country: US (occurrence: US)
  Receive Date: 20130507
  Receipt Date: 20130705
  Transmission Date: 20140515
  Serious: Yes (Hospitalization)
  Sender: FDA-Public Use
  Company Number: US-JNJFOC-20130416439

PATIENT
  Age: 15 Year
  Sex: Female
  Weight: 47 kg

DRUGS (14)
  1. REMICADE [Suspect]
     Indication: CROHN^S DISEASE
     Route: 042
     Dates: start: 20120703
  2. REMICADE [Suspect]
     Indication: CROHN^S DISEASE
     Route: 042
     Dates: start: 20081004
  3. REMICADE [Suspect]
     Indication: CROHN^S DISEASE
     Route: 042
     Dates: start: 20120906, end: 20121108
  4. CIMZIA [Concomitant]
     Indication: CROHN^S DISEASE
     Route: 065
     Dates: start: 20121127
  5. FERROUS SULPHATE [Concomitant]
     Route: 065
     Dates: start: 20121127
  6. PEPTAMEN [Concomitant]
     Dosage: 1.5
     Route: 065
  7. CHOLECALCIFEROL [Concomitant]
     Dosage: 1.5
     Route: 065
  8. OMEPRAZOLE [Concomitant]
     Dosage: 1.5
     Route: 065
  9. PHENOL [Concomitant]
     Dosage: 1.5
     Route: 065
  10. ZINC SULFATE [Concomitant]
     Dosage: 1.5
     Route: 065
  11. ANTIBIOTICS [Concomitant]
     Indication: INFLAMMATORY BOWEL DISEASE
     Route: 065
  12. OXYCODONE [Concomitant]
     Route: 065
  13. IBUPROFEN [Concomitant]
     Route: 065
  14. ACETAMINOPHEN [Concomitant]
     Route: 065

REACTIONS (4)
  - Crohn^s disease [Recovered/Resolved]
  - Vomiting [Recovered/Resolved]
  - Abdominal pain [Recovered/Resolved]
  - Diarrhoea [Recovered/Resolved]
